FAERS Safety Report 18754230 (Version 1)
Quarter: 2021Q1

REPORT INFORMATION
  Report Type: Spontaneous
  Country: KR (occurrence: KR)
  Receive Date: 20210119
  Receipt Date: 20210119
  Transmission Date: 20210419
  Serious: Yes (Other)
  Sender: FDA-Public Use
  Company Number: KR-SUN PHARMACEUTICAL INDUSTRIES LTD-2021R1-275764

PATIENT
  Age: 50 Year
  Sex: Female

DRUGS (6)
  1. MEPIVACAINE [Suspect]
     Active Substance: MEPIVACAINE HYDROCHLORIDE
     Indication: VERTEBRAL FORAMINAL STENOSIS
  2. HYALURONIDASE [Suspect]
     Active Substance: HYALURONIDASE
     Indication: SPINAL STENOSIS
     Dosage: 1500 IU INTERNATIONAL UNIT(S), 4 ML MIXTURE OF 1% MEPIVACAINE, DEXAMETHASONE 5MG, AND 1500 IU HYALUR
     Route: 008
  3. DEXAMETHASONE. [Suspect]
     Active Substance: DEXAMETHASONE
     Indication: VERTEBRAL FORAMINAL STENOSIS
  4. HYALURONIDASE [Suspect]
     Active Substance: HYALURONIDASE
     Indication: VERTEBRAL FORAMINAL STENOSIS
  5. DEXAMETHASONE. [Suspect]
     Active Substance: DEXAMETHASONE
     Indication: SPINAL STENOSIS
     Dosage: 5 MILLIGRAM, 4 ML MIXTURE OF 1% MEPIVACAINE, DEXAMETHASONE 5MG, AND 1500 IU HYALURONIDASE
     Route: 008
  6. MEPIVACAINE [Suspect]
     Active Substance: MEPIVACAINE HYDROCHLORIDE
     Indication: SPINAL STENOSIS
     Dosage: 1 PERCENT, 4 ML MIXTURE OF 1% MEPIVACAINE, DEXAMETHASONE 5MG, AND 1500 IU HYALURONIDASE
     Route: 008

REACTIONS (2)
  - Myelopathy [Recovering/Resolving]
  - Quadriparesis [Recovering/Resolving]
